FAERS Safety Report 24304575 (Version 1)
Quarter: 2024Q3

REPORT INFORMATION
  Report Type: Other
  Country: US (occurrence: US)
  Receive Date: 20240910
  Receipt Date: 20240910
  Transmission Date: 20241017
  Serious: Yes (Hospitalization)
  Sender: SIGMA TAU
  Company Number: US-LEADIANT GMBH-2023STPI000344

PATIENT
  Sex: Female

DRUGS (1)
  1. MATULANE [Suspect]
     Active Substance: PROCARBAZINE HYDROCHLORIDE
     Indication: Hodgkin^s disease nodular sclerosis
     Dosage: 50 MILLIGRAMS, 3 CAPSULES (150MG TOTAL) ON 04 SEPTEMBER, 2023 TO 07 SEPTEMBER 2023, AS DIRECTED
     Route: 048
     Dates: start: 20230902

REACTIONS (1)
  - Pyrexia [Unknown]
